FAERS Safety Report 7008435-8 (Version None)
Quarter: 2010Q3

REPORT INFORMATION
  Report Type: 
  Country: None (occurrence: None)
  Receive Date: 20100922
  Receipt Date: 20100827
  Transmission Date: 20110219
  Serious: Yes (Other)
  Sender: FDA-Public Use
  Company Number: SE-SANOFI-AVENTIS-2010SA039042

PATIENT
  Sex: Female

DRUGS (2)
  1. LANTUS [Suspect]
     Dosage: DOSE:6 UNIT(S)
     Route: 058
     Dates: start: 20100601, end: 20100705
  2. NOVORAPID [Concomitant]
     Dosage: 2-4 UNITS THREE TIMES A DAY
     Route: 058
     Dates: start: 20100628

REACTIONS (4)
  - FATIGUE [None]
  - MUSCULOSKELETAL STIFFNESS [None]
  - MYALGIA [None]
  - POLYMYALGIA RHEUMATICA [None]
